FAERS Safety Report 17185143 (Version 2)
Quarter: 2021Q1

REPORT INFORMATION
  Report Type: Spontaneous
  Country: US (occurrence: US)
  Receive Date: 20191220
  Receipt Date: 20210129
  Transmission Date: 20210419
  Serious: Yes (Hospitalization)
  Sender: FDA-Public Use
  Company Number: US-VERTEX PHARMACEUTICALS-2019-013169

PATIENT
  Age: 6 Year
  Sex: Female
  Weight: 20.41 kg

DRUGS (13)
  1. VITAMIN D3 [Concomitant]
     Active Substance: CHOLECALCIFEROL
  2. FLONASE [Concomitant]
     Active Substance: FLUTICASONE PROPIONATE
  3. PROAIR HFA [Concomitant]
     Active Substance: ALBUTEROL SULFATE
  4. SYMDEKO [Suspect]
     Active Substance: IVACAFTOR\TEZACAFTOR
     Indication: CYSTIC FIBROSIS
     Dosage: 50MG TEZACAFTOR/75MG IVACAFTOR; 75MG IVACAFTOR , BID, 1 WHITE TAB AM, 1 BLUE TAB PM, 12 HRS
     Route: 048
     Dates: start: 201912
  5. LANSOPRAZOLE. [Concomitant]
     Active Substance: LANSOPRAZOLE
  6. TOBI [Concomitant]
     Active Substance: TOBRAMYCIN
     Dosage: UNK
  7. PULMICORT TURBUHALER [Concomitant]
     Active Substance: BUDESONIDE
  8. SYMBICORT [Concomitant]
     Active Substance: BUDESONIDE\FORMOTEROL FUMARATE DIHYDRATE
  9. CREON [Concomitant]
     Active Substance: PANCRELIPASE AMYLASE\PANCRELIPASE LIPASE\PANCRELIPASE PROTEASE
  10. ALBUTEROL [SALBUTAMOL] [Concomitant]
     Active Substance: ALBUTEROL
  11. CLARITIN [CLARITHROMYCIN] [Concomitant]
     Active Substance: CLARITHROMYCIN
  12. PULMOZYME [Concomitant]
     Active Substance: DORNASE ALFA
     Dosage: UNK
  13. SALINE NASAL MIST [Concomitant]

REACTIONS (1)
  - Infective pulmonary exacerbation of cystic fibrosis [Unknown]

NARRATIVE: CASE EVENT DATE: 20191204
